FAERS Safety Report 17538034 (Version 2)
Quarter: 2021Q2

REPORT INFORMATION
  Report Type: Spontaneous
  Country: US (occurrence: US)
  Receive Date: 20200313
  Receipt Date: 20210412
  Transmission Date: 20210716
  Serious: Yes (Other)
  Sender: FDA-Public Use
  Company Number: US-PFIZER INC-2018393477

PATIENT
  Age: 43 Year
  Sex: Female

DRUGS (3)
  1. PREMARIN [Suspect]
     Active Substance: ESTROGENS, CONJUGATED
     Indication: HYSTERECTOMY
     Dosage: 2.5 MG, 1X/DAY [TAKE 2 PILLS BY MOUTH ONCE DAILY]
     Route: 048
  2. PREMARIN [Suspect]
     Active Substance: ESTROGENS, CONJUGATED
     Indication: OVARIAN FAILURE POSTOPERATIVE
     Dosage: 1.25 MG, ^SEVERAL YEARS AGO ^
     Route: 048
  3. PREMARIN [Suspect]
     Active Substance: ESTROGENS, CONJUGATED
     Indication: MENOPAUSE
     Dosage: 2.5 MG, DAILY
     Route: 048

REACTIONS (3)
  - Mood swings [Unknown]
  - Hot flush [Unknown]
  - Product prescribing error [Unknown]
